FAERS Safety Report 11491843 (Version 1)
Quarter: 2015Q3

REPORT INFORMATION
  Report Type: Spontaneous
  Country: US (occurrence: None)
  Receive Date: 20150909
  Receipt Date: 20150909
  Transmission Date: 20151125
  Serious: Yes (Life-Threatening, Disabling, Other)
  Sender: FDA-Public Use
  Company Number: None

PATIENT
  Age: 56 Year
  Sex: Male
  Weight: 138.35 kg

DRUGS (10)
  1. TRAZODONE [Suspect]
     Active Substance: TRAZODONE HYDROCHLORIDE
     Indication: INSOMNIA
     Route: 048
     Dates: start: 20150819, end: 20150906
  2. EPIPEN [Concomitant]
     Active Substance: EPINEPHRINE
  3. DIAZEPAM. [Concomitant]
     Active Substance: DIAZEPAM
  4. ALLOPURINOL. [Concomitant]
     Active Substance: ALLOPURINOL
  5. OXYCODONE HCL [Concomitant]
     Active Substance: OXYCODONE HYDROCHLORIDE
  6. TAMSULOSIN HCL [Concomitant]
     Active Substance: TAMSULOSIN
  7. VENLAFAXINE HCL [Concomitant]
     Active Substance: VENLAFAXINE HYDROCHLORIDE
  8. VITAMIN D [Concomitant]
     Active Substance: CHOLECALCIFEROL
  9. LYRICA [Concomitant]
     Active Substance: PREGABALIN
  10. TRAZODONE HYDROCHLORIDE. [Concomitant]
     Active Substance: TRAZODONE HYDROCHLORIDE

REACTIONS (12)
  - Loss of consciousness [None]
  - Burning sensation [None]
  - Sneezing [None]
  - Head injury [None]
  - Dizziness [None]
  - Skin abrasion [None]
  - Arthralgia [None]
  - Myalgia [None]
  - Feeling abnormal [None]
  - Alopecia [None]
  - Mass [None]
  - Arthropathy [None]

NARRATIVE: CASE EVENT DATE: 20150906
